FAERS Safety Report 4463818-5 (Version None)
Quarter: 2004Q3

REPORT INFORMATION
  Report Type: 
  Country: None (occurrence: None)
  Receive Date: 20040929
  Receipt Date: 20040914
  Transmission Date: 20050211
  Serious: Yes (Hospitalization)
  Sender: FDA-Public Use
  Company Number: 2003US005067

PATIENT
  Age: 14 Year
  Sex: Male

DRUGS (13)
  1. AMBISOME [Suspect]
     Indication: FUSARIUM INFECTION
     Dosage: 250 MG, UID/QD, INTRAVENOUS
     Route: 042
     Dates: start: 20021114, end: 20021124
  2. AMBISOME [Suspect]
     Indication: PSEUDOMONAS INFECTION
     Dosage: 250 MG, UID/QD, INTRAVENOUS
     Route: 042
     Dates: start: 20021114, end: 20021124
  3. PROPOFOL [Suspect]
     Indication: ANAESTHESIA
     Dosage: 37.50 MG, TOTAL DOSE,
     Dates: start: 20021121, end: 20021121
  4. SEPTRIN FORTE (TRIMETHOPRIM, SULFAMETHOXAZOLE) [Concomitant]
  5. PROZAC [Concomitant]
  6. BAYCIP PO (CIPROFLOXACIN HYDROCHLORIDE) [Concomitant]
  7. TIENAM (IMIPENEM, CILASTATIN) [Concomitant]
  8. TRAMADOL HCL [Concomitant]
  9. NOLOTIL (METAMIZOLE MAGNESIUM) [Concomitant]
  10. GRANOCYTE (LENOGRASTIM) [Concomitant]
  11. BIOBRANE (SURGICAL DRESSINGS) [Concomitant]
  12. FENTANYL [Concomitant]
  13. ROCURONIUM (ROCURONIUM) [Concomitant]

REACTIONS (1)
  - PANCREATITIS ACUTE [None]
